FAERS Safety Report 21223312 (Version 1)
Quarter: 2022Q3

REPORT INFORMATION
  Report Type: Other
  Country: ES (occurrence: None)
  Receive Date: 20220817
  Receipt Date: 20220817
  Transmission Date: 20221027
  Serious: Yes (Death)
  Sender: FDA-Public Use
  Company Number: ES-ROCHE-3160436

PATIENT

DRUGS (3)
  1. RITUXIMAB [Suspect]
     Active Substance: RITUXIMAB
     Indication: Lymphoma
     Dosage: FOR 4 DOSES IN CYCLE 1 (+/- CYCLE 2)
     Route: 042
  2. PARSACLISIB [Suspect]
     Active Substance: PARSACLISIB
     Indication: Lymphoma
     Route: 048
  3. PARSACLISIB [Suspect]
     Active Substance: PARSACLISIB
     Route: 048

REACTIONS (2)
  - COVID-19 pneumonia [Fatal]
  - COVID-19 [Fatal]
